FAERS Safety Report 25450575 (Version 1)
Quarter: 2025Q2

REPORT INFORMATION
  Report Type: Spontaneous
  Country: JP (occurrence: JP)
  Receive Date: 20250618
  Receipt Date: 20250618
  Transmission Date: 20250716
  Serious: Yes (Hospitalization)
  Sender: MYLAN
  Company Number: JP-VIATRISJAPAN-2025M1049829AA

PATIENT
  Age: 10 Year
  Sex: Male

DRUGS (4)
  1. ANHIBA [Suspect]
     Active Substance: ACETAMINOPHEN
     Indication: Influenza
  2. ANHIBA [Suspect]
     Active Substance: ACETAMINOPHEN
     Route: 065
  3. ANHIBA [Suspect]
     Active Substance: ACETAMINOPHEN
     Route: 065
  4. ANHIBA [Suspect]
     Active Substance: ACETAMINOPHEN

REACTIONS (1)
  - Drug eruption [Recovered/Resolved]
